FAERS Safety Report 21630688 (Version 2)
Quarter: 2022Q4

REPORT INFORMATION
  Report Type: Spontaneous
  Country: US (occurrence: US)
  Receive Date: 20221123
  Receipt Date: 20221213
  Transmission Date: 20230113
  Serious: No
  Sender: FDA-Public Use
  Company Number: US-INCYTE CORPORATION-2022IN011058

PATIENT

DRUGS (2)
  1. JAKAFI [Suspect]
     Active Substance: RUXOLITINIB
     Indication: Polycythaemia vera
     Route: 048
  2. JAKAFI [Suspect]
     Active Substance: RUXOLITINIB
     Dosage: 10 MILLIGRAM, BID
     Route: 048
     Dates: start: 20221115

REACTIONS (6)
  - Abdominal discomfort [Unknown]
  - Blood pressure abnormal [Unknown]
  - Rash [Unknown]
  - Aphthous ulcer [Unknown]
  - Cyst [Unknown]
  - Headache [Unknown]
